FAERS Safety Report 20931959 (Version 1)
Quarter: 2022Q2

REPORT INFORMATION
  Report Type: Spontaneous
  Country: US (occurrence: None)
  Receive Date: 20220607
  Receipt Date: 20220607
  Transmission Date: 20220720
  Serious: No
  Sender: FDA-Public Use
  Company Number: None

PATIENT
  Age: 54 Year
  Sex: Female

DRUGS (1)
  1. OTEZLA [Suspect]
     Active Substance: APREMILAST
     Indication: Behcet^s syndrome
     Dosage: OTHER QUANTITY : TAKE 1 TABLET ;?FREQUENCY : TWICE A DAY;?
     Route: 048
     Dates: start: 202201

REACTIONS (1)
  - Thrombosis [None]
